FAERS Safety Report 22747438 (Version 2)
Quarter: 2025Q2

REPORT INFORMATION
  Report Type: Spontaneous
  Country: JP (occurrence: JP)
  Receive Date: 20230725
  Receipt Date: 20250624
  Transmission Date: 20250716
  Serious: Yes (Other)
  Sender: ORGANON
  Company Number: JP-ORGANON-O2307JPN002664

PATIENT
  Sex: Male

DRUGS (10)
  1. MONTELUKAST SODIUM [Suspect]
     Active Substance: MONTELUKAST SODIUM
     Dates: start: 201912, end: 201912
  2. CALONAL [Suspect]
     Active Substance: ACETAMINOPHEN
  3. ACETAMINOPHEN\CAFFEINE\PROMETHAZINE\SALICYLAMIDE [Suspect]
     Active Substance: ACETAMINOPHEN\CAFFEINE\PROMETHAZINE\SALICYLAMIDE
  4. CARBOCYSTEINE [Suspect]
     Active Substance: CARBOCYSTEINE
  5. REBAMIPIDE [Suspect]
     Active Substance: REBAMIPIDE
  6. EPHEDRA SINICA STEM\HERBALS [Suspect]
     Active Substance: EPHEDRA SINICA STEM\HERBALS
  7. HERBALS [Suspect]
     Active Substance: HERBALS
  8. HERBALS [Suspect]
     Active Substance: HERBALS
  9. CLARITHROMYCIN [Suspect]
     Active Substance: CLARITHROMYCIN
  10. GARENOXACIN MESYLATE [Suspect]
     Active Substance: GARENOXACIN MESYLATE

REACTIONS (1)
  - Drug-induced liver injury [Unknown]

NARRATIVE: CASE EVENT DATE: 20191201
